FAERS Safety Report 24607175 (Version 1)
Quarter: 2024Q4

REPORT INFORMATION
  Report Type: Spontaneous
  Country: US (occurrence: None)
  Receive Date: 20241111
  Receipt Date: 20241111
  Transmission Date: 20250115
  Serious: Yes (Death)
  Sender: Public
  Company Number: None

PATIENT
  Age: 45 Year
  Sex: Male
  Weight: 82.96 kg

DRUGS (8)
  1. LOKELMA [Suspect]
     Active Substance: SODIUM ZIRCONIUM CYCLOSILICATE
     Indication: Product used for unknown indication
     Dosage: OTHER STRENGTH : 10 GM PACKETS;?OTHER QUANTITY : 1 PACKET;?FREQUENCY : DAILY;?
     Route: 048
     Dates: start: 20221111
  2. TYLENOL [Concomitant]
  3. FOLIC ACID [Concomitant]
  4. HYDROXYUREA [Concomitant]
  5. SODIUM BICARBONATE [Concomitant]
  6. CALCIUM CARB [Concomitant]
  7. MELATONIN [Concomitant]
  8. LOKELMA [Concomitant]

REACTIONS (1)
  - Death [None]

NARRATIVE: CASE EVENT DATE: 20241106
